FAERS Safety Report 9221138 (Version 1)
Quarter: 2013Q2

REPORT INFORMATION
  Report Type: Report from Study
  Country: SE (occurrence: SE)
  Receive Date: 20130409
  Receipt Date: 20130409
  Transmission Date: 20140414
  Serious: Yes (Hospitalization)
  Sender: FDA-Public Use
  Company Number: SE-009507513-1304SWE002802

PATIENT
  Age: 49 Year
  Sex: Female
  Weight: 108.8 kg

DRUGS (7)
  1. BETAMETHASONE [Suspect]
     Indication: NAUSEA
     Route: 065
  2. SENDOXAN [Suspect]
     Indication: BREAST CANCER
     Dosage: UNK
     Route: 042
     Dates: start: 20130225
  3. SENDOXAN [Suspect]
     Dosage: UNK
     Route: 042
     Dates: start: 20130204
  4. EPIRUBICIN HYDROCHLORIDE [Suspect]
     Indication: BREAST CANCER
     Dosage: UNK
     Route: 042
     Dates: start: 20130225
  5. EPIRUBICIN HYDROCHLORIDE [Suspect]
     Dosage: UNK
     Route: 042
     Dates: start: 20130204
  6. FLUOROURACIL [Suspect]
     Indication: BREAST CANCER
     Dosage: UNK
     Route: 042
     Dates: start: 20130225
  7. FLUOROURACIL [Suspect]
     Dosage: UNK
     Route: 042
     Dates: start: 20130204

REACTIONS (2)
  - Dyspepsia [Recovered/Resolved]
  - Gastrooesophageal reflux disease [Recovered/Resolved]
